FAERS Safety Report 19221779 (Version 7)
Quarter: 2025Q2

REPORT INFORMATION
  Report Type: Spontaneous
  Country: CZ (occurrence: CZ)
  Receive Date: 20210506
  Receipt Date: 20250623
  Transmission Date: 20250716
  Serious: Yes (Hospitalization, Other)
  Sender: AUROBINDO
  Company Number: CZ-002147023-NVSC2021CZ093499

PATIENT
  Age: 44 Year
  Sex: Male

DRUGS (13)
  1. ARIPIPRAZOLE [Suspect]
     Active Substance: ARIPIPRAZOLE
     Indication: Schizophrenia
     Route: 048
  2. OLANZAPINE [Suspect]
     Active Substance: OLANZAPINE
     Indication: Schizophrenia
     Route: 048
  3. OLANZAPINE [Suspect]
     Active Substance: OLANZAPINE
     Dosage: 20 MILLIGRAM, ONCE A DAY
     Route: 065
     Dates: start: 202012
  4. CARIPRAZINE [Suspect]
     Active Substance: CARIPRAZINE
     Indication: Schizophrenia
     Dosage: 6 MILLIGRAM, ONCE A DAY WITH OLANZAPINE 20 MG
     Route: 065
     Dates: start: 202012
  5. ESCITALOPRAM [Suspect]
     Active Substance: ESCITALOPRAM OXALATE
     Indication: Schizophrenia
     Route: 048
  6. PALIPERIDONE [Suspect]
     Active Substance: PALIPERIDONE
     Indication: Schizophrenia
     Route: 048
  7. RISPERIDONE [Suspect]
     Active Substance: RISPERIDONE
     Indication: Product used for unknown indication
     Route: 065
  8. BIPERIDEN HYDROCHLORIDE [Concomitant]
     Active Substance: BIPERIDEN HYDROCHLORIDE
     Indication: Product used for unknown indication
     Route: 065
  9. HALOPERIDOL [Concomitant]
     Active Substance: HALOPERIDOL
     Indication: Product used for unknown indication
     Route: 065
  10. SULPIRIDE [Concomitant]
     Active Substance: SULPIRIDE
     Indication: Product used for unknown indication
     Route: 065
  11. LURASIDONE [Concomitant]
     Active Substance: LURASIDONE
     Indication: Drug therapy
     Route: 065
  12. LURASIDONE [Concomitant]
     Active Substance: LURASIDONE
     Route: 065
  13. LURASIDONE [Concomitant]
     Active Substance: LURASIDONE
     Route: 065

REACTIONS (7)
  - Weight increased [Recovered/Resolved]
  - Restlessness [Recovered/Resolved]
  - Treatment noncompliance [Recovered/Resolved]
  - Therapeutic product effect incomplete [Unknown]
  - Urinary retention [Recovered/Resolved]
  - Tremor [Recovered/Resolved]
  - Treatment failure [Unknown]
